FAERS Safety Report 8901874 (Version 1)
Quarter: 2012Q4

REPORT INFORMATION
  Report Type: Spontaneous
  Country: US (occurrence: None)
  Receive Date: 20121109
  Receipt Date: 20121109
  Transmission Date: 20130627
  Serious: Yes (Life-Threatening)
  Sender: FDA-Public Use
  Company Number: None

PATIENT
  Age: 59 Year
  Sex: Female
  Weight: 51.71 kg

DRUGS (1)
  1. VISTARIL [Suspect]
     Dates: start: 20121021, end: 20121022

REACTIONS (4)
  - Nausea [None]
  - Pallor [None]
  - Arthritis [None]
  - Condition aggravated [None]
